FAERS Safety Report 5000829-5 (Version None)
Quarter: 2006Q2

REPORT INFORMATION
  Report Type: 
  Country: None (occurrence: None)
  Receive Date: 20060512
  Receipt Date: 20050315
  Transmission Date: 20061013
  Serious: No
  Sender: FDA-Public Use
  Company Number: US-MERCK-0503USA03162

PATIENT
  Sex: Female
  Weight: 66 kg

DRUGS (2)
  1. VIOXX [Suspect]
     Indication: BACK PAIN
     Route: 048
     Dates: start: 20040101, end: 20040201
  2. TRIPHASIL-28 [Concomitant]
     Route: 065

REACTIONS (2)
  - DUODENAL ULCER [None]
  - OVERDOSE [None]
